FAERS Safety Report 7384511-5 (Version None)
Quarter: 2011Q1

REPORT INFORMATION
  Report Type: 
  Country: None (occurrence: None)
  Receive Date: 20110322
  Receipt Date: 20110311
  Transmission Date: 20110831
  Serious: Yes (Other)
  Sender: FDA-Public Use
  Company Number: 028519

PATIENT
  Age: 78 Year
  Sex: Female

DRUGS (5)
  1. KEPPRA [Suspect]
     Indication: STATUS EPILEPTICUS
     Dosage: 500 MG, QID, ORAL
     Route: 048
     Dates: start: 20110211, end: 20110213
  2. PRACETAMOL [Concomitant]
  3. LUMINAL [Concomitant]
  4. CLOPIDOGREL [Suspect]
     Indication: STATUS EPILEPTICUS
     Dosage: 75 MG, QD, ORAL
     Route: 048
     Dates: start: 20100101, end: 20110213
  5. CLEXANE (CLEXANE) [Suspect]
     Indication: THROMBOSIS PROPHYLAXIS
     Dates: start: 20110119, end: 20110213

REACTIONS (4)
  - OFF LABEL USE [None]
  - THROMBOCYTOPENIA [None]
  - EPISTAXIS [None]
  - STATUS EPILEPTICUS [None]
